FAERS Safety Report 7795996-4 (Version None)
Quarter: 2011Q4

REPORT INFORMATION
  Report Type: 
  Country: None (occurrence: None)
  Receive Date: 20111004
  Receipt Date: 20110921
  Transmission Date: 20120403
  Serious: No
  Sender: FDA-Public Use
  Company Number: US-B.I. PHARMACEUTICALS,INC./RIDGEFIELD-2011-BP-22637BP

PATIENT
  Sex: Female

DRUGS (13)
  1. DIOVAN [Concomitant]
     Indication: HYPERTENSION
     Dosage: 320 MG
  2. PROBIOTICS [Concomitant]
     Indication: IRRITABLE BOWEL SYNDROME
  3. ASPIRIN [Concomitant]
     Indication: PROPHYLAXIS
     Dosage: 81 MG
  4. TENORMIN [Concomitant]
     Indication: HYPERTENSION
  5. THYROID TAB [Concomitant]
     Indication: HYPOTHYROIDISM
  6. VIT D3 [Concomitant]
     Indication: PROPHYLAXIS
  7. CO ENZYME B B50 COMPLEX [Concomitant]
     Indication: VITAMIN B COMPLEX DEFICIENCY
  8. CATAPRES-TTS-1 [Suspect]
     Indication: HYPERTENSION
     Dosage: 0.3 MG
     Route: 061
     Dates: start: 20110831, end: 20110831
  9. HORMONES [Concomitant]
     Indication: HYSTERECTOMY
  10. VIT B12 [Concomitant]
     Indication: VITAMIN B COMPLEX DEFICIENCY
  11. CALCIUM CITRATE [Concomitant]
     Indication: PROPHYLAXIS
  12. XANAX [Concomitant]
     Indication: ANXIETY
  13. FOLIC ACID [Concomitant]

REACTIONS (3)
  - HEADACHE [None]
  - NECK PAIN [None]
  - NAUSEA [None]
